FAERS Safety Report 5000535-7 (Version None)
Quarter: 2006Q2

REPORT INFORMATION
  Report Type: 
  Country: None (occurrence: None)
  Receive Date: 20060512
  Receipt Date: 20050603
  Transmission Date: 20061013
  Serious: No
  Sender: FDA-Public Use
  Company Number: US-BRISTOL-MYERS SQUIBB COMPANY-12995593

PATIENT

DRUGS (1)
  1. CYTOXAN [Suspect]

REACTIONS (1)
  - HYPERSENSITIVITY [None]
